FAERS Safety Report 7145091-2 (Version None)
Quarter: 2010Q4

REPORT INFORMATION
  Report Type: 
  Country: None (occurrence: None)
  Receive Date: 20101208
  Receipt Date: 20101206
  Transmission Date: 20110411
  Serious: Yes (Death, Hospitalization)
  Sender: FDA-Public Use
  Company Number: US-NAPPMUNDI-USA-2010-0046426

PATIENT
  Sex: Female
  Weight: 44.444 kg

DRUGS (13)
  1. MS CONTIN [Suspect]
     Indication: CANCER PAIN
     Dosage: 1200 MG, Q12H
     Route: 048
     Dates: start: 20100310
  2. UNKNOWN [Suspect]
     Indication: COLON CANCER
     Dosage: UNK
     Route: 042
  3. MIRALAX [Concomitant]
     Indication: CONSTIPATION
  4. SENNA                              /00142201/ [Concomitant]
     Indication: CONSTIPATION
     Dosage: UNK
     Dates: start: 20100308
  5. NEURONTIN [Concomitant]
     Indication: PAIN
     Dosage: UNK
     Dates: start: 20100310
  6. PROTONIX [Concomitant]
     Indication: PROPHYLAXIS
     Dosage: UNK
     Dates: start: 20100309
  7. PROTONIX [Concomitant]
     Indication: GASTROOESOPHAGEAL REFLUX DISEASE
  8. MORPHINE SULFATE [Concomitant]
     Indication: PRODUCT USED FOR UNKNOWN INDICATION
     Dosage: UNK
     Dates: start: 20100301
  9. ATIVAN [Concomitant]
     Indication: ANXIETY
     Dosage: UNK
     Dates: start: 20100308
  10. DULCOLAX [Concomitant]
     Indication: CONSTIPATION
     Dosage: UNK
     Dates: start: 20100308
  11. DESIPRAMINE HCL [Concomitant]
     Indication: PAIN
     Dosage: UNK
     Dates: start: 20100311
  12. OXYCODONE HCL [Concomitant]
     Indication: PAIN
     Dosage: UNK
     Dates: start: 20100311
  13. DEXAMETHASONE [Concomitant]
     Indication: CANCER PAIN

REACTIONS (3)
  - COLON CANCER METASTATIC [None]
  - GRAND MAL CONVULSION [None]
  - MALIGNANT NEOPLASM PROGRESSION [None]
